FAERS Safety Report 23175664 (Version 2)
Quarter: 2023Q4

REPORT INFORMATION
  Report Type: Other
  Country: US (occurrence: None)
  Receive Date: 20231113
  Receipt Date: 20231127
  Transmission Date: 20240109
  Serious: Yes (Other)
  Sender: FDA-Public Use
  Company Number: US-ROCHE-3455247

PATIENT
  Age: 27 Year
  Sex: Male

DRUGS (1)
  1. HEMLIBRA [Suspect]
     Active Substance: EMICIZUMAB-KXWH
     Indication: Factor VIII deficiency
     Route: 065

REACTIONS (7)
  - Myelodysplastic syndrome [Unknown]
  - Leukaemia [Unknown]
  - Lymphoma [Unknown]
  - Thrombocytopenia [Unknown]
  - Administration site pain [Unknown]
  - Drug ineffective [Unknown]
  - Intentional product misuse [Unknown]
